FAERS Safety Report 11183062 (Version 1)
Quarter: 2015Q2

REPORT INFORMATION
  Report Type: Spontaneous
  Country: JP (occurrence: JP)
  Receive Date: 20150611
  Receipt Date: 20150611
  Transmission Date: 20150821
  Serious: Yes (Other)
  Sender: FDA-Public Use
  Company Number: JP-BAYER-2015-327243

PATIENT
  Sex: Female

DRUGS (1)
  1. EMPECID [Suspect]
     Active Substance: CLOTRIMAZOLE
     Dosage: UNK
     Route: 067

REACTIONS (2)
  - Shock [None]
  - Drug eruption [None]

NARRATIVE: CASE EVENT DATE: 2012
